FAERS Safety Report 23569720 (Version 3)
Quarter: 2024Q1

REPORT INFORMATION
  Report Type: Spontaneous
  Country: CN (occurrence: CN)
  Receive Date: 20240227
  Receipt Date: 20240316
  Transmission Date: 20240409
  Serious: Yes (Life-Threatening, Hospitalization, Other)
  Sender: FDA-Public Use
  Company Number: CN-Accord-408137

PATIENT
  Age: 32 Year
  Sex: Female

DRUGS (5)
  1. CLOZAPINE [Suspect]
     Active Substance: CLOZAPINE
     Indication: Schizophrenia
     Dosage: 200*25 MG
  2. ARIPIPRAZOLE [Concomitant]
     Active Substance: ARIPIPRAZOLE
     Indication: Schizophrenia
  3. LITHIUM CARBONATE [Concomitant]
     Active Substance: LITHIUM CARBONATE
     Indication: Schizophrenia
  4. CLOZAPINE [Suspect]
     Active Substance: CLOZAPINE
     Indication: Schizophrenia
  5. CLOZAPINE [Suspect]
     Active Substance: CLOZAPINE
     Indication: Schizophrenia

REACTIONS (19)
  - Haemodynamic instability [Recovered/Resolved]
  - Sinus tachycardia [Unknown]
  - Hypotension [Recovered/Resolved]
  - Maternal exposure during pregnancy [Unknown]
  - Respiratory rate increased [Unknown]
  - White blood cell count increased [Unknown]
  - Neutrophilia [Unknown]
  - Anaemia [Unknown]
  - Hyponatraemia [Unknown]
  - Hypokalaemia [Unknown]
  - Hypoproteinaemia [Unknown]
  - Hypoxia [Unknown]
  - Metabolic acidosis [Unknown]
  - Cardiotoxicity [Unknown]
  - Intentional overdose [Unknown]
  - Vascular resistance systemic decreased [Recovered/Resolved]
  - Coma [Recovered/Resolved]
  - Toxicity to various agents [Recovered/Resolved]
  - Cardiac output increased [Recovered/Resolved]
